FAERS Safety Report 10218562 (Version 1)
Quarter: 2014Q2

REPORT INFORMATION
  Report Type: Report from Study
  Country: US (occurrence: US)
  Receive Date: 20140605
  Receipt Date: 20140605
  Transmission Date: 20141212
  Serious: Yes (Other)
  Sender: FDA-Public Use
  Company Number: US-ROCHE-1410769

PATIENT
  Sex: 0

DRUGS (3)
  1. CAPECITABINE [Suspect]
     Indication: ANAL SQUAMOUS CELL CARCINOMA
     Route: 065
  2. CISPLATIN [Suspect]
     Indication: ANAL SQUAMOUS CELL CARCINOMA
     Dosage: DAILY CISPLATIN (4 MG/M2 PER DAY) OR A BOLUS DOSE OF 20 MG/M2 (DAY 1 OF EACH WEEK)
     Route: 042
  3. 5-FU [Suspect]
     Indication: ANAL SQUAMOUS CELL CARCINOMA
     Route: 042

REACTIONS (8)
  - Diarrhoea [Unknown]
  - Nausea [Unknown]
  - Vomiting [Unknown]
  - Radiation skin injury [Unknown]
  - Gastrointestinal haemorrhage [Unknown]
  - Neutropenia [Unknown]
  - Mucosal inflammation [Unknown]
  - Dyspareunia [Unknown]
